FAERS Safety Report 8936373 (Version 1)
Quarter: 2012Q4

REPORT INFORMATION
  Report Type: 
  Country: US (occurrence: US)
  Receive Date: 20121130
  Receipt Date: 20121130
  Transmission Date: 20130627
  Serious: No
  Sender: FDA-Public Use
  Company Number: US-ABBOTT-12P-163-1001303-00

PATIENT
  Sex: Male
  Weight: 79.9 kg

DRUGS (4)
  1. ANDROGEL [Suspect]
     Indication: BLOOD TESTOSTERONE DECREASED
     Dosage: Form strength: 1.62%
     Route: 061
     Dates: start: 20120501, end: 201210
  2. ANDROGEL [Suspect]
     Indication: BLOOD TESTOSTERONE DECREASED
     Dosage: Form strength: 1%
     Dates: start: 2008, end: 20120430
  3. ANDROGEL [Suspect]
  4. ANDROGEL [Suspect]

REACTIONS (5)
  - Blood testosterone decreased [Not Recovered/Not Resolved]
  - Fatigue [Recovering/Resolving]
  - Feeling abnormal [Recovering/Resolving]
  - Drug administered at inappropriate site [Unknown]
  - Blood testosterone increased [Recovered/Resolved]
